FAERS Safety Report 8611061-8 (Version None)
Quarter: 2012Q3

REPORT INFORMATION
  Report Type: 
  Country: None (occurrence: None)
  Receive Date: 20120822
  Receipt Date: 20120814
  Transmission Date: 20120928
  Serious: No
  Sender: FDA-Public Use
  Company Number: US-BAYER-2012-084814

PATIENT

DRUGS (2)
  1. ALEVE (CAPLET) [Suspect]
     Indication: PAIN
     Route: 048
  2. ALEVE (CAPLET) [Suspect]
     Dosage: 7 UNK, UNK
     Dates: start: 20120814, end: 20120814

REACTIONS (1)
  - PAIN [None]
